FAERS Safety Report 7546472-5 (Version None)
Quarter: 2011Q2

REPORT INFORMATION
  Report Type: 
  Country: None (occurrence: None)
  Receive Date: 20110614
  Receipt Date: 20110609
  Transmission Date: 20111010
  Serious: Yes (Hospitalization)
  Sender: FDA-Public Use
  Company Number: US-ABBOTT-11P-163-0709802-00

PATIENT
  Sex: Male
  Weight: 103.97 kg

DRUGS (4)
  1. VOLTAREN [Concomitant]
     Indication: RHEUMATOID ARTHRITIS
     Dosage: 75 MG AS NEEDED DAILY
  2. HUMIRA [Suspect]
     Indication: RHEUMATOID ARTHRITIS
     Dates: start: 20040519
  3. XALATAN [Concomitant]
     Indication: GLAUCOMA
     Dosage: EYE DROPS EVERY DAY
  4. PREDNISONE [Concomitant]
     Indication: RHEUMATOID ARTHRITIS
     Dosage: 3 TO 5 MG DAILY

REACTIONS (1)
  - CORONARY ARTERY OCCLUSION [None]
